FAERS Safety Report 6491940-0 (Version None)
Quarter: 2009Q4

REPORT INFORMATION
  Report Type: 
  Country: None (occurrence: None)
  Receive Date: 20091208
  Receipt Date: 20091118
  Transmission Date: 20100525
  Serious: Yes (Disabling)
  Sender: FDA-Public Use
  Company Number: OSCN-NO-0910S-0476

PATIENT
  Age: 43 Year
  Sex: Female
  Weight: 100 kg

DRUGS (1)
  1. GADOLINIUM (UNSPECIFIED) [Suspect]
     Indication: DRUG USE FOR UNKNOWN INDICATION
     Dosage: SINGLE DOSE, I.V.
     Route: 042
     Dates: start: 20031128, end: 20031128

REACTIONS (7)
  - DIALYSIS [None]
  - GAIT DISTURBANCE [None]
  - JOINT STIFFNESS [None]
  - NEPHROGENIC SYSTEMIC FIBROSIS [None]
  - PAIN IN EXTREMITY [None]
  - PYODERMA GANGRENOSUM [None]
  - SENSORY DISTURBANCE [None]
